FAERS Safety Report 18427615 (Version 11)
Quarter: 2023Q2

REPORT INFORMATION
  Report Type: Spontaneous
  Country: US (occurrence: US)
  Receive Date: 20201026
  Receipt Date: 20230427
  Transmission Date: 20230722
  Serious: Yes (Other)
  Sender: FDA-Public Use
  Company Number: US-PFIZER INC-2020409664

PATIENT
  Age: 78 Year
  Sex: Female

DRUGS (2)
  1. IBRANCE [Suspect]
     Active Substance: PALBOCICLIB
     Indication: Breast cancer metastatic
     Dosage: 100 MG
  2. IBRANCE [Suspect]
     Active Substance: PALBOCICLIB
     Dosage: 75 MG

REACTIONS (8)
  - Cardiac pacemaker insertion [Unknown]
  - Neoplasm progression [Unknown]
  - Mobility decreased [Unknown]
  - Blood test abnormal [Unknown]
  - Gait disturbance [Unknown]
  - Full blood count decreased [Unknown]
  - Pain [Unknown]
  - Malaise [Unknown]
